APPROVED DRUG PRODUCT: MERCAPTOPURINE
Active Ingredient: MERCAPTOPURINE
Strength: 50MG
Dosage Form/Route: TABLET;ORAL
Application: A040594 | Product #001 | TE Code: AB
Applicant: MYLAN PHARMACEUTICALS INC
Approved: Jul 1, 2005 | RLD: No | RS: No | Type: RX